FAERS Safety Report 14713471 (Version 1)
Quarter: 2018Q2

REPORT INFORMATION
  Report Type: Report from Study
  Country: US (occurrence: US)
  Receive Date: 20180404
  Receipt Date: 20180404
  Transmission Date: 20180711
  Serious: Yes (Other)
  Sender: FDA-Public Use
  Company Number: US-ROCHE-2096521

PATIENT

DRUGS (1)
  1. BEVACIZUMAB. [Suspect]
     Active Substance: BEVACIZUMAB
     Indication: PROSTATE CANCER
     Route: 065

REACTIONS (5)
  - Soft tissue necrosis [Recovered/Resolved]
  - Hyperkalaemia [Recovered/Resolved]
  - Embolism [Unknown]
  - Pulmonary haemorrhage [Unknown]
  - Abdominal infection [Recovered/Resolved]
